FAERS Safety Report 4694676-1 (Version None)
Quarter: 2005Q2

REPORT INFORMATION
  Report Type: 
  Country: None (occurrence: None)
  Receive Date: 20050620
  Receipt Date: 20050610
  Transmission Date: 20051028
  Serious: Yes (Death)
  Sender: FDA-Public Use
  Company Number: GB-GLAXOSMITHKLINE-B0384035A

PATIENT
  Sex: Male

DRUGS (2)
  1. AUGMENTIN '125' [Suspect]
     Indication: PNEUMONIA
     Dates: start: 20030401
  2. ZOMETA [Concomitant]
     Indication: METASTASES TO BONE
     Dates: start: 20030202

REACTIONS (6)
  - DEATH [None]
  - GENERAL PHYSICAL HEALTH DETERIORATION [None]
  - HEPATORENAL SYNDROME [None]
  - JAUNDICE CHOLESTATIC [None]
  - MULTI-ORGAN FAILURE [None]
  - PERIPHERAL SENSORIMOTOR NEUROPATHY [None]
